FAERS Safety Report 9434154 (Version 1)
Quarter: 2013Q3

REPORT INFORMATION
  Report Type: Spontaneous
  Country: US (occurrence: None)
  Receive Date: 20130730
  Receipt Date: 20130730
  Transmission Date: 20140515
  Serious: Yes (Other)
  Sender: FDA-Public Use
  Company Number: None

PATIENT
  Age: 52 Year
  Sex: Male
  Weight: 77.8 kg

DRUGS (1)
  1. FLUNISOLIDE [Suspect]
     Dosage: 29 MCG OTHER NASAL
     Route: 045
     Dates: start: 20110909, end: 20130715

REACTIONS (1)
  - Drug ineffective [None]
